FAERS Safety Report 4761790-1 (Version None)
Quarter: 2005Q3

REPORT INFORMATION
  Report Type: 
  Country: None (occurrence: None)
  Receive Date: 20050831
  Receipt Date: 20050505
  Transmission Date: 20060218
  Serious: No
  Sender: FDA-Public Use
  Company Number: PHEH2005US05190

PATIENT
  Age: 59 Year
  Sex: Male

DRUGS (4)
  1. ENABLEX [Suspect]
     Indication: BLADDER SPASM
     Dosage: 7.5 MG, QD; 15 MG, QD
     Dates: start: 20050301
  2. LOPRESSOR [Concomitant]
  3. ATIVAN [Concomitant]
  4. XANAX [Concomitant]

REACTIONS (2)
  - CONSTIPATION [None]
  - DRUG INEFFECTIVE [None]
